FAERS Safety Report 22196784 (Version 1)
Quarter: 2023Q2

REPORT INFORMATION
  Report Type: Spontaneous
  Country: US (occurrence: US)
  Receive Date: 20230411
  Receipt Date: 20230411
  Transmission Date: 20230722
  Serious: Yes (Hospitalization, Other)
  Sender: FDA-Public Use
  Company Number: US-drreddys-LIT/USA/23/0163469

PATIENT
  Age: 67 Year
  Sex: Male

DRUGS (4)
  1. PRIMIDONE [Suspect]
     Active Substance: PRIMIDONE
     Indication: Essential tremor
  2. TICAGRELOR [Suspect]
     Active Substance: TICAGRELOR
     Indication: Coronary artery disease
  3. TICAGRELOR [Suspect]
     Active Substance: TICAGRELOR
     Dosage: RELOADED DOSE
  4. ASPIRIN [Suspect]
     Active Substance: ASPIRIN
     Indication: Coronary artery disease

REACTIONS (8)
  - Vascular stent thrombosis [Unknown]
  - Drug interaction [Unknown]
  - Acute coronary syndrome [Unknown]
  - Syncope [Unknown]
  - Anaemia [Unknown]
  - Drug ineffective [Unknown]
  - Platelet aggregation inhibition [Unknown]
  - Treatment noncompliance [Unknown]
